FAERS Safety Report 15551432 (Version 1)
Quarter: 2018Q4

REPORT INFORMATION
  Report Type: Spontaneous
  Country: None (occurrence: US)
  Receive Date: 20181025
  Receipt Date: 20181025
  Transmission Date: 20190205
  Serious: No
  Sender: FDA-Public Use
  Company Number: US-AMNEAL PHARMACEUTICALS-2018AMN00567

PATIENT
  Age: 16 Year
  Sex: Female

DRUGS (5)
  1. ISOTRETINOIN. [Suspect]
     Active Substance: ISOTRETINOIN
     Dosage: 30 MG, 2X/DAY
     Route: 065
     Dates: start: 20180601, end: 20180702
  2. ISOTRETINOIN. [Suspect]
     Active Substance: ISOTRETINOIN
     Dosage: 20 MG, 3X/DAY
     Route: 065
     Dates: start: 20180503, end: 20180601
  3. ISOTRETINOIN. [Suspect]
     Active Substance: ISOTRETINOIN
     Dosage: 30 MG, 2X/DAY
     Route: 065
     Dates: start: 20180702, end: 20180806
  4. ISOTRETINOIN. [Suspect]
     Active Substance: ISOTRETINOIN
     Dosage: 20 MG, 2X/DAY
     Route: 065
     Dates: start: 20180403, end: 20180503
  5. ISOTRETINOIN. [Suspect]
     Active Substance: ISOTRETINOIN
     Dosage: 20 MG, 2X/DAY
     Route: 065
     Dates: start: 20180806, end: 20180904

REACTIONS (4)
  - Feeling abnormal [Unknown]
  - Depressed mood [Unknown]
  - Irritability [Unknown]
  - Alopecia [Unknown]

NARRATIVE: CASE EVENT DATE: 20180806
